FAERS Safety Report 8280942-X (Version None)
Quarter: 2012Q2

REPORT INFORMATION
  Report Type: 
  Country: None (occurrence: None)
  Receive Date: 20120412
  Receipt Date: 20120409
  Transmission Date: 20120825
  Serious: Yes (Hospitalization)
  Sender: FDA-Public Use
  Company Number: JP-ABBOTT-12P-087-0913896-00

PATIENT
  Age: 46 Year
  Sex: Female

DRUGS (2)
  1. DIAZEPAM [Concomitant]
     Indication: PRODUCT USED FOR UNKNOWN INDICATION
  2. LEUPROLIDE ACETATE [Suspect]
     Indication: PRODUCT USED FOR UNKNOWN INDICATION
     Route: 058
     Dates: start: 20111101, end: 20120120

REACTIONS (4)
  - STATUS EPILEPTICUS [None]
  - PITUITARY HAEMORRHAGE [None]
  - BLOOD PROLACTIN INCREASED [None]
  - BLOOD PROLACTIN ABNORMAL [None]
